FAERS Safety Report 5886200-2 (Version None)
Quarter: 2008Q3

REPORT INFORMATION
  Report Type: 
  Country: None (occurrence: None)
  Receive Date: 20080917
  Receipt Date: 20080914
  Transmission Date: 20090109
  Serious: No
  Sender: FDA-Public Use
  Company Number: AE-ROCHE-586117

PATIENT
  Sex: Female

DRUGS (1)
  1. ROACCUTANE [Suspect]
     Indication: DRUG USE FOR UNKNOWN INDICATION
     Route: 048
     Dates: start: 20080701, end: 20080801

REACTIONS (2)
  - NO ADVERSE EVENT [None]
  - PREGNANCY [None]
